FAERS Safety Report 7941396-3 (Version None)
Quarter: 2011Q4

REPORT INFORMATION
  Report Type: 
  Country: None (occurrence: None)
  Receive Date: 20111128
  Receipt Date: 20111118
  Transmission Date: 20120403
  Serious: Yes (Other)
  Sender: FDA-Public Use
  Company Number: CA-JNJFOC-20111108970

PATIENT
  Age: 55 Year
  Sex: Male
  Weight: 116 kg

DRUGS (7)
  1. TRAMADOL HYDROCHLORIDE/ACETAMINOPHEN [Concomitant]
  2. XARELTO [Suspect]
     Indication: ILL-DEFINED DISORDER
     Route: 048
  3. MINOCYCLINE HCL [Concomitant]
  4. CYCLOBENZAPRINE [Concomitant]
  5. MAGNESIUM CITRATE [Concomitant]
  6. CALCIUM CARBONATE [Concomitant]
  7. METRONIDAZOLE [Concomitant]

REACTIONS (1)
  - DEEP VEIN THROMBOSIS [None]
